FAERS Safety Report 7542900-X (Version None)
Quarter: 2011Q2

REPORT INFORMATION
  Report Type: 
  Country: None (occurrence: None)
  Receive Date: 20110613
  Receipt Date: 20110531
  Transmission Date: 20111010
  Serious: Yes (Other)
  Sender: FDA-Public Use
  Company Number: PHHY2011CH45267

PATIENT
  Sex: Female

DRUGS (2)
  1. ZOLEDRONIC ACID [Suspect]
     Indication: OSTEOPOROSIS
     Dosage: 5 MG,
     Route: 042
     Dates: start: 20110301, end: 20110301
  2. NOROXIN [Concomitant]
     Dosage: UNK

REACTIONS (6)
  - HYPERSENSITIVITY [None]
  - MYALGIA [None]
  - BONE DENSITY ABNORMAL [None]
  - SYNCOPE [None]
  - FEELING ABNORMAL [None]
  - PAIN [None]
